FAERS Safety Report 7626806-3 (Version None)
Quarter: 2011Q3

REPORT INFORMATION
  Report Type: 
  Country: None (occurrence: None)
  Receive Date: 20110721
  Receipt Date: 20110718
  Transmission Date: 20111222
  Serious: Yes (Other)
  Sender: FDA-Public Use
  Company Number: DE-BAYER-2011-039863

PATIENT
  Age: 42 Year
  Sex: Female

DRUGS (2)
  1. MIRENA [Suspect]
     Indication: CONTRACEPTION
     Dosage: UNK
     Route: 015
     Dates: end: 20110302
  2. MIRENA [Suspect]
     Dosage: UNK
     Route: 015
     Dates: start: 20110302, end: 20110510

REACTIONS (1)
  - BREAST CANCER [None]
